FAERS Safety Report 6419377-0 (Version None)
Quarter: 2009Q4

REPORT INFORMATION
  Report Type: 
  Country: None (occurrence: None)
  Receive Date: 20091029
  Receipt Date: 20090803
  Transmission Date: 20100525
  Serious: Yes (Life-Threatening)
  Sender: FDA-Public Use
  Company Number: PT-ABBOTT-09P-130-0589086-00

PATIENT
  Sex: Female
  Weight: 53 kg

DRUGS (6)
  1. NORVIR [Suspect]
     Indication: HIV INFECTION
     Route: 048
     Dates: start: 20090703, end: 20090718
  2. NORVIR [Suspect]
     Dates: start: 20090718, end: 20090721
  3. TRUVADA [Suspect]
     Indication: HIV INFECTION
     Dosage: 1 FILM-COATED TABLET DAILY
     Route: 048
     Dates: start: 20090703, end: 20090718
  4. REYATAZ [Suspect]
     Indication: HIV INFECTION
     Route: 048
     Dates: start: 20090703, end: 20090718
  5. REYATAZ [Suspect]
     Route: 048
     Dates: start: 20090718, end: 20090721
  6. LAMIVUDINE + ZIDOVUDINE [Suspect]
     Indication: HIV INFECTION
     Dates: start: 20090718, end: 20090721

REACTIONS (6)
  - ANGIOEDEMA [None]
  - EYE PRURITUS [None]
  - FACE OEDEMA [None]
  - OCULAR HYPERAEMIA [None]
  - RASH GENERALISED [None]
  - TOXIC SKIN ERUPTION [None]
